FAERS Safety Report 18877618 (Version 1)
Quarter: 2021Q1

REPORT INFORMATION
  Report Type: Other
  Country: CN (occurrence: CN)
  Receive Date: 20210211
  Receipt Date: 20210211
  Transmission Date: 20210420
  Serious: Yes (Other)
  Sender: FDA-Public Use
  Company Number: CN-ROCHE-2764143

PATIENT

DRUGS (1)
  1. RITUXIMAB. [Suspect]
     Active Substance: RITUXIMAB
     Indication: NEPHROTIC SYNDROME
     Route: 042

REACTIONS (7)
  - Rash [Unknown]
  - Upper respiratory tract infection [Recovered/Resolved]
  - Intentional product use issue [Unknown]
  - Hypotension [Unknown]
  - Off label use [Unknown]
  - Pneumonia [Recovered/Resolved]
  - Pyrexia [Unknown]
